FAERS Safety Report 13515803 (Version 1)
Quarter: 2017Q2

REPORT INFORMATION
  Report Type: Report from Study
  Country: None (occurrence: BR)
  Receive Date: 20170504
  Receipt Date: 20170504
  Transmission Date: 20170830
  Serious: Yes (Hospitalization)
  Sender: FDA-Public Use
  Company Number: BR-ABBVIE-17K-020-1959993-00

PATIENT
  Age: 42 Year
  Sex: Female
  Weight: 57 kg

DRUGS (5)
  1. AZATHIOPRINE. [Concomitant]
     Active Substance: AZATHIOPRINE
     Indication: CROHN^S DISEASE
     Route: 048
     Dates: start: 201701
  2. SIMECO PLUS [Concomitant]
     Indication: DYSPEPSIA
     Dosage: 1 TEASPOON
     Route: 048
     Dates: start: 20170302
  3. HUMIRA [Suspect]
     Active Substance: ADALIMUMAB
     Route: 058
     Dates: start: 2017
  4. HUMIRA [Suspect]
     Active Substance: ADALIMUMAB
     Indication: CROHN^S DISEASE
     Dosage: LOADING DOSE WEEK 0
     Route: 058
     Dates: start: 20170203, end: 20170203
  5. HUMIRA [Suspect]
     Active Substance: ADALIMUMAB
     Dosage: LOADING DOSE WEEK 1
     Route: 058
     Dates: start: 201702, end: 201702

REACTIONS (14)
  - Dyschezia [Recovered/Resolved]
  - Intestinal ulcer [Unknown]
  - Stenosis [Recovered/Resolved]
  - Arthralgia [Recovered/Resolved]
  - Asthenia [Recovered/Resolved]
  - Flatulence [Recovered/Resolved]
  - Muscular weakness [Recovered/Resolved]
  - Intestinal ulcer [Recovered/Resolved]
  - Abdominal pain [Recovered/Resolved]
  - C-reactive protein abnormal [Unknown]
  - Abdominal distension [Unknown]
  - Drug effect decreased [Unknown]
  - Feeding disorder [Recovered/Resolved]
  - Nausea [Unknown]

NARRATIVE: CASE EVENT DATE: 2017
